FAERS Safety Report 9984974 (Version 1)
Quarter: 2014Q1

REPORT INFORMATION
  Report Type: Report from Study
  Country: US (occurrence: US)
  Receive Date: 20140307
  Receipt Date: 20140307
  Transmission Date: 20141002
  Serious: No
  Sender: FDA-Public Use
  Company Number: US-ABBVIE-13P-163-1184469-00

PATIENT
  Age: 49 Year
  Sex: Female
  Weight: 102.15 kg

DRUGS (13)
  1. HUMIRA [Suspect]
     Indication: RHEUMATOID ARTHRITIS
     Route: 058
     Dates: start: 2011
  2. METHOTREXATE [Concomitant]
     Indication: RHEUMATOID ARTHRITIS
  3. DICLOFENAC [Concomitant]
     Indication: RHEUMATOID ARTHRITIS
  4. FOLIC ACID [Concomitant]
     Indication: VITAMIN SUPPLEMENTATION
  5. HYDROCODONE [Concomitant]
     Indication: PAIN
  6. SINGULAIR [Concomitant]
     Indication: HYPERSENSITIVITY
  7. VITAMIN D NOS [Concomitant]
     Indication: VITAMIN D DEFICIENCY
  8. NEXIUM [Concomitant]
     Indication: GASTROOESOPHAGEAL REFLUX DISEASE
  9. CARVEDILOL [Concomitant]
     Indication: HYPERTENSION
  10. ARMOUR THYROID [Concomitant]
     Indication: HYPOTHYROIDISM
  11. WELLBUTRIN [Concomitant]
     Indication: DEPRESSION
  12. CLONAZEPAM [Concomitant]
     Indication: ANXIETY
  13. NUVIGIL [Concomitant]
     Indication: PRODUCT USED FOR UNKNOWN INDICATION

REACTIONS (1)
  - Dysphonia [Not Recovered/Not Resolved]
